FAERS Safety Report 4651508-5 (Version None)
Quarter: 2005Q2

REPORT INFORMATION
  Report Type: 
  Country: None (occurrence: None)
  Receive Date: 20050502
  Receipt Date: 20050418
  Transmission Date: 20051028
  Serious: Yes (Other)
  Sender: FDA-Public Use
  Company Number: 2005065152

PATIENT
  Age: 68 Year
  Sex: Male
  Weight: 72.5755 kg

DRUGS (8)
  1. BEXTRA [Suspect]
     Indication: ARTHRALGIA
     Dosage: (1 IN 1 D), ORAL
     Route: 048
     Dates: start: 20040201
  2. GALENIC/BISOPROLOL/HYDROCHLOROTHIAZIDE/ (BISOPROLOL, HYDROCHLOROTHIAZI [Concomitant]
  3. TOLTERODINE TARTRATE [Concomitant]
  4. ROSUVASTATIN (ROSUVASTATIN) [Concomitant]
  5. LEVOTHYROXINE SODIUM [Concomitant]
  6. ASPIRIN [Concomitant]
  7. FISH OIL (FISH OIL) [Concomitant]
  8. EZETIMIBE (EZETIMIBE) [Concomitant]

REACTIONS (1)
  - RASH MACULAR [None]
